FAERS Safety Report 6772023-9 (Version None)
Quarter: 2010Q2

REPORT INFORMATION
  Report Type: 
  Country: None (occurrence: None)
  Receive Date: 20100616
  Receipt Date: 20100614
  Transmission Date: 20101027
  Serious: Yes (Death)
  Sender: FDA-Public Use
  Company Number: CA-B.I. PHARMACEUTICALS,INC./RIDGEFIELD-2010-CN-00386CN

PATIENT
  Age: 66 Year
  Sex: Male

DRUGS (1)
  1. CATAPRES [Suspect]
     Indication: PAIN MANAGEMENT

REACTIONS (1)
  - MALIGNANT NEOPLASM PROGRESSION [None]
